FAERS Safety Report 6049189-1 (Version None)
Quarter: 2009Q1

REPORT INFORMATION
  Report Type: 
  Country: None (occurrence: None)
  Receive Date: 20090123
  Receipt Date: 20090120
  Transmission Date: 20090719
  Serious: Yes (Other)
  Sender: FDA-Public Use
  Company Number: CA-PFIZER INC-2008080475

PATIENT

DRUGS (3)
  1. LYRICA [Suspect]
     Indication: EAR PAIN
     Dosage: 75 MG, 1X/DAY
     Route: 048
     Dates: start: 20080911, end: 20080921
  2. LYRICA [Suspect]
     Indication: PAIN
  3. PAROXETINE HCL [Concomitant]

REACTIONS (1)
  - VAGINAL HAEMORRHAGE [None]
